FAERS Safety Report 26160210 (Version 1)
Quarter: 2025Q4

REPORT INFORMATION
  Report Type: Spontaneous
  Country: US (occurrence: US)
  Receive Date: 20251216
  Receipt Date: 20251216
  Transmission Date: 20260118
  Serious: No
  Sender: BAUSCH AND LOMB
  Company Number: US-BAUSCH-BH-2025-019138

PATIENT
  Age: 95 Year
  Sex: Female

DRUGS (1)
  1. IPRATROPIUM BROMIDE [Suspect]
     Active Substance: IPRATROPIUM BROMIDE
     Indication: Product used for unknown indication
     Dosage: BAR CODE: 200025908
     Route: 065

REACTIONS (5)
  - Memory impairment [Unknown]
  - Product delivery mechanism issue [Unknown]
  - Incorrect dose administered by product [Unknown]
  - Product quality issue [Unknown]
  - Patient dissatisfaction with treatment [Unknown]
